FAERS Safety Report 20181931 (Version 3)
Quarter: 2022Q1

REPORT INFORMATION
  Report Type: Spontaneous
  Country: US (occurrence: US)
  Receive Date: 20211214
  Receipt Date: 20220111
  Transmission Date: 20220423
  Serious: Yes (Hospitalization)
  Sender: FDA-Public Use
  Company Number: US-KARYOPHARM-2021KPT001449

PATIENT

DRUGS (12)
  1. XPOVIO [Suspect]
     Active Substance: SELINEXOR
     Indication: Non-Hodgkin^s lymphoma
     Dosage: 60 MG, 2X/WEEK
     Route: 048
     Dates: start: 20211101
  2. AZITHROMYCIN [Concomitant]
     Active Substance: AZITHROMYCIN
  3. BROVANA [Concomitant]
     Active Substance: ARFORMOTEROL TARTRATE
  4. BUDESONIDE [Concomitant]
     Active Substance: BUDESONIDE
  5. DECADRON [Concomitant]
     Active Substance: DEXAMETHASONE
  6. ELIQUIS [Concomitant]
     Active Substance: APIXABAN
  7. EMLA [Concomitant]
     Active Substance: LIDOCAINE\PRILOCAINE
  8. PRAVACHOL [Concomitant]
     Active Substance: PRAVASTATIN SODIUM
  9. PREDNISONE [Concomitant]
     Active Substance: PREDNISONE
  10. STIOLTO RESPIMAT [Concomitant]
     Active Substance: OLODATEROL HYDROCHLORIDE\TIOTROPIUM BROMIDE MONOHYDRATE
  11. VENTOLIN [Concomitant]
     Active Substance: ALBUTEROL SULFATE
  12. ZOFRAN [Concomitant]
     Active Substance: ONDANSETRON HYDROCHLORIDE

REACTIONS (7)
  - Confusional state [Not Recovered/Not Resolved]
  - Dehydration [Unknown]
  - Cough [Unknown]
  - Nasal congestion [Unknown]
  - Asthenia [Unknown]
  - Decreased appetite [Not Recovered/Not Resolved]
  - Off label use [Unknown]

NARRATIVE: CASE EVENT DATE: 20211101
